FAERS Safety Report 14413190 (Version 2)
Quarter: 2018Q2

REPORT INFORMATION
  Report Type: Spontaneous
  Country: SE (occurrence: SE)
  Receive Date: 20180119
  Receipt Date: 20180405
  Transmission Date: 20180711
  Serious: Yes (Other)
  Sender: FDA-Public Use
  Company Number: SE-TEVA-2018-SE-846745

PATIENT
  Sex: Male

DRUGS (1)
  1. QUETIAPINE ACTAVIS [Suspect]
     Active Substance: QUETIAPINE
     Indication: DEPRESSED MOOD
     Dosage: 200 MILLIGRAM DAILY;
     Route: 048

REACTIONS (2)
  - Product substitution issue [Recovered/Resolved]
  - Formication [Recovered/Resolved]
